FAERS Safety Report 13758450 (Version 1)
Quarter: 2017Q3

REPORT INFORMATION
  Report Type: Spontaneous
  Country: US (occurrence: US)
  Receive Date: 20170716
  Receipt Date: 20170716
  Transmission Date: 20171127
  Serious: Yes (Hospitalization, Other)
  Sender: FDA-Public Use
  Company Number: None

PATIENT
  Age: 82 Year
  Sex: Male

DRUGS (1)
  1. TARCEVA [Suspect]
     Active Substance: ERLOTINIB HYDROCHLORIDE
     Indication: LUNG NEOPLASM MALIGNANT
     Route: 048
     Dates: start: 201706

REACTIONS (8)
  - Liver function test increased [None]
  - Fall [None]
  - Muscular weakness [None]
  - Blood magnesium decreased [None]
  - Diarrhoea [None]
  - Rash [None]
  - Haemoglobin decreased [None]
  - Rectal abscess [None]

NARRATIVE: CASE EVENT DATE: 20170708
